FAERS Safety Report 23091668 (Version 1)
Quarter: 2023Q4

REPORT INFORMATION
  Report Type: Spontaneous
  Country: US (occurrence: US)
  Receive Date: 20231020
  Receipt Date: 20231020
  Transmission Date: 20240110
  Serious: Yes (Death, Hospitalization, Other)
  Sender: FDA-Public Use
  Company Number: US-GILEAD-2023-0648111

PATIENT
  Age: 22 Year
  Sex: Female
  Weight: 75 kg

DRUGS (8)
  1. YESCARTA [Suspect]
     Active Substance: AXICABTAGENE CILOLEUCEL
     Indication: Diffuse large B-cell lymphoma
     Dosage: MAX (2X10^8)
     Route: 042
     Dates: start: 20230831, end: 20230831
  2. FLUDARABINE [Concomitant]
     Active Substance: FLUDARABINE PHOSPHATE
     Indication: Lymphodepletion
     Dosage: UNK
     Dates: start: 20230826, end: 20230828
  3. CYCLOPHOSPHAMIDE [Concomitant]
     Active Substance: CYCLOPHOSPHAMIDE
     Indication: Lymphodepletion
     Dosage: UNK
     Dates: start: 20230826, end: 20230828
  4. DEXAMETHASONE [Concomitant]
     Active Substance: DEXAMETHASONE
     Indication: Diffuse large B-cell lymphoma
     Dosage: UNK, BRIDGING CHEMOTHERAPY, STEROID TAPER
     Dates: start: 20230823
  5. DEXAMETHASONE [Concomitant]
     Active Substance: DEXAMETHASONE
     Indication: Cytokine release syndrome
     Dosage: UNK
     Dates: start: 20230903
  6. DEXAMETHASONE [Concomitant]
     Active Substance: DEXAMETHASONE
     Indication: Febrile neutropenia
     Dosage: UNK,STANDING
  7. DEXAMETHASONE [Concomitant]
     Active Substance: DEXAMETHASONE
     Indication: Neurotoxicity
     Dosage: 10 MG, Q6H
     Dates: start: 20230906
  8. DEXAMETHASONE [Concomitant]
     Active Substance: DEXAMETHASONE
     Indication: Immune effector cell-associated neurotoxicity syndrome

REACTIONS (25)
  - Diffuse large B-cell lymphoma [Fatal]
  - Respiratory acidosis [Fatal]
  - Brain oedema [Fatal]
  - Cerebral haemorrhage [Unknown]
  - Enterococcal sepsis [Unknown]
  - Pneumonia [Unknown]
  - Pneumonia aspiration [Unknown]
  - Fungaemia [Unknown]
  - Gastrointestinal haemorrhage [Unknown]
  - Acute myocardial infarction [Unknown]
  - Cardiac dysfunction [Unknown]
  - Generalised tonic-clonic seizure [Unknown]
  - Renal failure [Fatal]
  - Neurotoxicity [Fatal]
  - Hypertension [Unknown]
  - Hypervolaemia [Unknown]
  - Disseminated intravascular coagulation [Unknown]
  - Colitis [Unknown]
  - Pulmonary embolism [Unknown]
  - Acute respiratory failure [Unknown]
  - Febrile neutropenia [Unknown]
  - Haemophagocytic lymphohistiocytosis [Unknown]
  - Mental status changes [Recovering/Resolving]
  - Immune effector cell-associated neurotoxicity syndrome [Unknown]
  - Cytokine release syndrome [Unknown]

NARRATIVE: CASE EVENT DATE: 20230901
